FAERS Safety Report 7329389-0 (Version None)
Quarter: 2011Q1

REPORT INFORMATION
  Report Type: 
  Country: None (occurrence: None)
  Receive Date: 20110218
  Receipt Date: 20110208
  Transmission Date: 20110831
  Serious: Yes (Hospitalization, Other)
  Sender: FDA-Public Use
  Company Number: 026158

PATIENT
  Sex: Female
  Weight: 68 kg

DRUGS (7)
  1. TORASEMID [Concomitant]
  2. SPIRONOLACTONE [Concomitant]
  3. BISOPROLOL [Concomitant]
  4. INSUMAN BASAL /01428201/ [Concomitant]
  5. STEROFUNDIN /00177701/ [Concomitant]
  6. RAMIPRIL [Concomitant]
  7. KEPPRA [Suspect]
     Indication: CONVULSION
     Dosage: (1000 MG BID INTRAVENOUS (NOT OTHERWISE SPECIFIED))
     Route: 042
     Dates: start: 20110111, end: 20110114

REACTIONS (1)
  - PANCYTOPENIA [None]
